FAERS Safety Report 23271469 (Version 1)
Quarter: 2023Q4

REPORT INFORMATION
  Report Type: Spontaneous
  Country: GB (occurrence: GB)
  Receive Date: 20231207
  Receipt Date: 20231207
  Transmission Date: 20240110
  Serious: Yes (Other)
  Sender: FDA-Public Use
  Company Number: None

PATIENT
  Age: 47 Year
  Sex: Female
  Weight: 75 kg

DRUGS (1)
  1. ESCITALOPRAM [Suspect]
     Active Substance: ESCITALOPRAM OXALATE
     Indication: Anxiety
     Dosage: 10MG ONCE A DAY
     Route: 065

REACTIONS (5)
  - Medication error [Unknown]
  - Female orgasmic disorder [Recovering/Resolving]
  - Psychosexual disorder [Recovering/Resolving]
  - Psychosexual disorder [Recovering/Resolving]
  - Hypoaesthesia [Unknown]
